FAERS Safety Report 7750066-6 (Version None)
Quarter: 2011Q3

REPORT INFORMATION
  Report Type: 
  Country: None (occurrence: None)
  Receive Date: 20110914
  Receipt Date: 20110914
  Transmission Date: 20111222
  Serious: Yes (Other)
  Sender: FDA-Public Use
  Company Number: AU-PFIZER INC-2011193102

PATIENT
  Age: 52 Year
  Sex: Female
  Weight: 68 kg

DRUGS (1)
  1. VARENICLINE TARTRATE [Suspect]
     Dosage: 1 MG, DAILY
     Route: 048
     Dates: start: 20110801, end: 20110815

REACTIONS (21)
  - FEELING ABNORMAL [None]
  - DECREASED APPETITE [None]
  - FEELING COLD [None]
  - INFLUENZA LIKE ILLNESS [None]
  - EPISTAXIS [None]
  - RALES [None]
  - NAUSEA [None]
  - CHILLS [None]
  - OROPHARYNGEAL PAIN [None]
  - HEADACHE [None]
  - ASTHENIA [None]
  - INFECTION [None]
  - PYREXIA [None]
  - MYALGIA [None]
  - RHINALGIA [None]
  - DIARRHOEA [None]
  - EYE PAIN [None]
  - DYSKINESIA [None]
  - DYSGEUSIA [None]
  - AGGRESSION [None]
  - NASAL DISCOMFORT [None]
